FAERS Safety Report 9548735 (Version 1)
Quarter: 2013Q3

REPORT INFORMATION
  Report Type: Spontaneous
  Country: US (occurrence: None)
  Receive Date: 20130923
  Receipt Date: 20130923
  Transmission Date: 20140515
  Serious: Yes (Disabling)
  Sender: FDA-Public Use
  Company Number: None

PATIENT
  Age: 15 Day
  Sex: Male
  Weight: 68.04 kg

DRUGS (1)
  1. TRAMADOL HCL [Suspect]
     Indication: PAIN
     Dosage: 1-2 PILLS, FOUR TIMES DAILY
     Route: 048
     Dates: start: 20130918, end: 20130919

REACTIONS (4)
  - Vision blurred [None]
  - Joint stiffness [None]
  - Incoherent [None]
  - Pain [None]
